FAERS Safety Report 10620216 (Version 4)
Quarter: 2015Q2

REPORT INFORMATION
  Report Type: Spontaneous
  Country: US (occurrence: US)
  Receive Date: 20141202
  Receipt Date: 20150513
  Transmission Date: 20150821
  Serious: Yes (Hospitalization)
  Sender: FDA-Public Use
  Company Number: US-BAYER-2014-177585

PATIENT
  Age: 21 Year
  Sex: Female
  Weight: 68.27 kg

DRUGS (2)
  1. MIRENA [Suspect]
     Active Substance: LEVONORGESTREL
     Indication: CONTRACEPTION
     Dosage: 20 MCG/24HR, CONT
     Route: 015
     Dates: start: 20080115, end: 20080530
  2. MIRENA [Suspect]
     Active Substance: LEVONORGESTREL
     Indication: CONTRACEPTION
     Dosage: UNK

REACTIONS (7)
  - Uterine perforation [None]
  - Infection [None]
  - Complication of device removal [None]
  - Pain [None]
  - Device breakage [None]
  - Injury [None]
  - Uterine prolapse [None]

NARRATIVE: CASE EVENT DATE: 2008
